FAERS Safety Report 6817743-2 (Version None)
Quarter: 2010Q3

REPORT INFORMATION
  Report Type: 
  Country: None (occurrence: None)
  Receive Date: 20100706
  Receipt Date: 20100622
  Transmission Date: 20110219
  Serious: Yes (Hospitalization)
  Sender: FDA-Public Use
  Company Number: US-CELGENEUS-163-20785-10062736

PATIENT
  Sex: Male

DRUGS (4)
  1. THALOMID [Suspect]
     Route: 048
     Dates: start: 20100101
  2. THALOMID [Suspect]
     Route: 048
     Dates: start: 20100506
  3. THALOMID [Suspect]
     Route: 048
     Dates: start: 20100501
  4. THALOMID [Suspect]
     Route: 048
     Dates: start: 20100501

REACTIONS (3)
  - HALLUCINATION [None]
  - NAUSEA [None]
  - VISUAL IMPAIRMENT [None]
